FAERS Safety Report 19198840 (Version 2)
Quarter: 2021Q2

REPORT INFORMATION
  Report Type: Spontaneous
  Country: US (occurrence: US)
  Receive Date: 20210430
  Receipt Date: 20210512
  Transmission Date: 20210717
  Serious: No
  Sender: FDA-Public Use
  Company Number: US-AMGEN-USASP2021064722

PATIENT
  Sex: Female

DRUGS (3)
  1. OTEZLA [Suspect]
     Active Substance: APREMILAST
     Indication: PRODUCT USED FOR UNKNOWN INDICATION
     Dosage: 30 MILLIGRAM, BID
     Route: 048
     Dates: start: 2020
  2. IRON [Concomitant]
     Active Substance: IRON
  3. NALTREXONE [Concomitant]
     Active Substance: NALTREXONE

REACTIONS (1)
  - Gastrooesophageal reflux disease [Unknown]
